FAERS Safety Report 5672527-6 (Version None)
Quarter: 2008Q1

REPORT INFORMATION
  Report Type: 
  Country: None (occurrence: None)
  Receive Date: 20080319
  Receipt Date: 20080305
  Transmission Date: 20080703
  Serious: Yes (Death)
  Sender: FDA-Public Use
  Company Number: JP-GENENTECH-257150

PATIENT
  Sex: Male

DRUGS (7)
  1. BEVACIZUMAB [Suspect]
     Indication: RECTAL CANCER RECURRENT
     Dosage: 5 MG/KG, Q2W
     Route: 041
     Dates: start: 20071127, end: 20080212
  2. OXALIPLATIN [Suspect]
     Indication: RECTAL CANCER RECURRENT
     Dosage: 85 MG/M2, QD
     Route: 041
     Dates: start: 20071127, end: 20080212
  3. ISOVORIN [Suspect]
     Indication: RECTAL CANCER RECURRENT
     Dosage: 200 MG/M2, QD
     Route: 041
     Dates: start: 20021127, end: 20080212
  4. FLUOROURACIL [Suspect]
     Indication: RECTAL CANCER RECURRENT
     Dosage: 400 MG/M2, QD
     Route: 042
     Dates: start: 20071127, end: 20080214
  5. DECADRON [Concomitant]
     Indication: DRUG USE FOR UNKNOWN INDICATION
     Dates: start: 20071127, end: 20080212
  6. KYTRIL [Concomitant]
     Indication: DRUG USE FOR UNKNOWN INDICATION
     Dates: start: 20071127, end: 20080212
  7. VITAMIN A [Concomitant]
     Indication: DRUG USE FOR UNKNOWN INDICATION
     Dates: start: 20071225, end: 20080224

REACTIONS (1)
  - DEATH [None]
